FAERS Safety Report 22215764 (Version 1)
Quarter: 2023Q2

REPORT INFORMATION
  Report Type: Report from Study
  Country: US (occurrence: US)
  Receive Date: 20230416
  Receipt Date: 20230416
  Transmission Date: 20230722
  Serious: Yes (Hospitalization)
  Sender: FDA-Public Use
  Company Number: US-BIOGEN-2023BI01198655

PATIENT
  Sex: Female

DRUGS (2)
  1. VUMERITY [Suspect]
     Active Substance: DIROXIMEL FUMARATE
     Indication: Multiple sclerosis
     Dosage: INITIAL DOSE FOR 7 DAYS
     Route: 050
     Dates: start: 20220408
  2. VUMERITY [Suspect]
     Active Substance: DIROXIMEL FUMARATE
     Route: 050
     Dates: start: 202204

REACTIONS (4)
  - Parasitic gastroenteritis [Unknown]
  - Weight decreased [Unknown]
  - Blood potassium decreased [Unknown]
  - Renal impairment [Unknown]
